FAERS Safety Report 8013764-5 (Version None)
Quarter: 2011Q4

REPORT INFORMATION
  Report Type: 
  Country: None (occurrence: None)
  Receive Date: 20111229
  Receipt Date: 20111219
  Transmission Date: 20120403
  Serious: Yes (Hospitalization, Other)
  Sender: FDA-Public Use
  Company Number: US-ELI_LILLY_AND_COMPANY-US201112004234

PATIENT
  Sex: Female

DRUGS (9)
  1. FORTEO [Suspect]
     Indication: OSTEOPOROSIS
     Dosage: 20 UG, QD
     Route: 065
     Dates: start: 20110101
  2. FORTEO [Suspect]
     Dosage: 20 UG, QD
     Route: 065
  3. ATENOLOL [Concomitant]
  4. PANTOPRAZOLE [Concomitant]
  5. CALCIUM W/VITAMIN D NOS [Concomitant]
  6. ASPIRIN [Concomitant]
  7. PLAVIX [Concomitant]
  8. SIMVASTATIN [Concomitant]
  9. ANALGESICS [Concomitant]
     Indication: PAIN

REACTIONS (5)
  - HOSPITALISATION [None]
  - FEELING ABNORMAL [None]
  - ASTHENIA [None]
  - STENT PLACEMENT [None]
  - MENTAL IMPAIRMENT [None]
